FAERS Safety Report 20682138 (Version 1)
Quarter: 2022Q2

REPORT INFORMATION
  Report Type: Spontaneous
  Country: US (occurrence: US)
  Receive Date: 20220407
  Receipt Date: 20220407
  Transmission Date: 20220721
  Serious: Yes (Other)
  Sender: FDA-Public Use
  Company Number: US-CIPLA LTD.-2022US02139

PATIENT

DRUGS (1)
  1. ISOPROTERENOL [Suspect]
     Active Substance: ISOPROTERENOL
     Indication: Bradycardia
     Dosage: UNK

REACTIONS (2)
  - Cardiogenic shock [Unknown]
  - Stress cardiomyopathy [Unknown]
